FAERS Safety Report 7851509-X (Version None)
Quarter: 2011Q4

REPORT INFORMATION
  Report Type: 
  Country: None (occurrence: None)
  Receive Date: 20111026
  Receipt Date: 20111013
  Transmission Date: 20120403
  Serious: Yes (Hospitalization)
  Sender: FDA-Public Use
  Company Number: DE-JNJFOC-20111009778

PATIENT
  Sex: Female

DRUGS (9)
  1. TAPENTADOL HYDROCHLORIDE [Suspect]
     Indication: NEURALGIA
     Route: 065
     Dates: start: 20110802, end: 20111013
  2. AMITRIPTYLINE HCL [Concomitant]
  3. REPAGLINIDE [Concomitant]
  4. TAPENTADOL HYDROCHLORIDE [Suspect]
     Indication: BACK PAIN
     Route: 065
     Dates: start: 20110802, end: 20111013
  5. METOPROLOL TARTRATE [Concomitant]
  6. FLUPIRTINE MALEATE [Concomitant]
  7. AMLODIPINE [Concomitant]
  8. RAMIPRIL [Concomitant]
  9. METFORMIN HCL [Concomitant]

REACTIONS (2)
  - FALL [None]
  - VERTIGO [None]
